FAERS Safety Report 14162247 (Version 2)
Quarter: 2017Q4

REPORT INFORMATION
  Report Type: Spontaneous
  Country: US (occurrence: US)
  Receive Date: 20171106
  Receipt Date: 20171219
  Transmission Date: 20180321
  Serious: No
  Sender: FDA-Public Use
  Company Number: US-ASTRAZENECA-2017SF11246

PATIENT
  Age: 84 Year
  Sex: Female
  Weight: 36.3 kg

DRUGS (5)
  1. IPRATROPIUM BROMIDE. [Concomitant]
     Active Substance: IPRATROPIUM BROMIDE
     Indication: DYSPNOEA
     Route: 045
  2. ADVIL [Concomitant]
     Active Substance: IBUPROFEN
     Indication: PAIN
     Dosage: AS REQUIRED
     Route: 048
  3. SYMBICORT [Suspect]
     Active Substance: BUDESONIDE\FORMOTEROL FUMARATE DIHYDRATE
     Indication: OXYGEN CONSUMPTION DECREASED
     Dosage: 160/4.5 MICROGRAMS ,TWO PUFFS TWO TIMES A DAY
     Route: 055
     Dates: start: 2015
  4. ALBUTEROL. [Concomitant]
     Active Substance: ALBUTEROL
     Indication: DYSPNOEA
     Dosage: AS REQUIRED
     Route: 055
  5. POISON IVY [Concomitant]
     Active Substance: TOXICODENDRON RADICANS LEAF
     Route: 065

REACTIONS (21)
  - Nasopharyngitis [Unknown]
  - Arthralgia [Not Recovered/Not Resolved]
  - Product quality issue [Not Recovered/Not Resolved]
  - Bronchitis [Unknown]
  - Memory impairment [Not Recovered/Not Resolved]
  - Fatigue [Not Recovered/Not Resolved]
  - Off label use [Not Recovered/Not Resolved]
  - Rhinorrhoea [Not Recovered/Not Resolved]
  - Product use in unapproved indication [Not Recovered/Not Resolved]
  - Gait disturbance [Not Recovered/Not Resolved]
  - Intentional product misuse [Not Recovered/Not Resolved]
  - Dyspnoea [Unknown]
  - Cough [Not Recovered/Not Resolved]
  - Pain in extremity [Not Recovered/Not Resolved]
  - Visual impairment [Unknown]
  - Choking [Not Recovered/Not Resolved]
  - Malaise [Not Recovered/Not Resolved]
  - Oxygen saturation decreased [Unknown]
  - Weight decreased [Unknown]
  - Sinusitis [Unknown]
  - Peripheral swelling [Not Recovered/Not Resolved]

NARRATIVE: CASE EVENT DATE: 2015
